FAERS Safety Report 9616731 (Version 2)
Quarter: 2013Q4

REPORT INFORMATION
  Report Type: Report from Study
  Country: AR (occurrence: AR)
  Receive Date: 20131011
  Receipt Date: 20131030
  Transmission Date: 20140711
  Serious: Yes (Other)
  Sender: FDA-Public Use
  Company Number: AR-ROCHE-1287570

PATIENT
  Sex: Male

DRUGS (1)
  1. RANIBIZUMAB [Suspect]
     Indication: EYE OEDEMA
     Route: 050
     Dates: start: 2013, end: 201308

REACTIONS (1)
  - Eye oedema [Not Recovered/Not Resolved]
